FAERS Safety Report 16076779 (Version 1)
Quarter: 2019Q1

REPORT INFORMATION
  Report Type: Spontaneous
  Country: ES (occurrence: ES)
  Receive Date: 20190315
  Receipt Date: 20190315
  Transmission Date: 20190418
  Serious: Yes (Hospitalization)
  Sender: FDA-Public Use
  Company Number: ES-B.I. PHARMACEUTICALS,INC./RIDGEFIELD-2019-12-000829

PATIENT
  Age: 58 Year
  Sex: Male
  Weight: 103 kg

DRUGS (1)
  1. JARDIANCE [Suspect]
     Active Substance: EMPAGLIFLOZIN
     Indication: PRODUCT USED FOR UNKNOWN INDICATION
     Dosage: 1 CADA 24H
     Route: 048
     Dates: start: 20180730, end: 20190110

REACTIONS (1)
  - Fournier^s gangrene [Recovered/Resolved]

NARRATIVE: CASE EVENT DATE: 20190110
